FAERS Safety Report 7912176-X (Version None)
Quarter: 2011Q4

REPORT INFORMATION
  Report Type: 
  Country: None (occurrence: None)
  Receive Date: 20111114
  Receipt Date: 20111104
  Transmission Date: 20120403
  Serious: Yes (Hospitalization, Other)
  Sender: FDA-Public Use
  Company Number: US-ACTELION-A-US2011-52020

PATIENT

DRUGS (4)
  1. TRACLEER [Suspect]
     Indication: PULMONARY ARTERIAL HYPERTENSION
     Dosage: 125 MG, BID
     Route: 048
     Dates: start: 20110323, end: 20110503
  2. TRACLEER [Suspect]
     Dosage: 62.5 MG, BID
     Route: 048
     Dates: start: 20110222, end: 20110322
  3. TRACLEER [Suspect]
     Dosage: UNK
     Route: 048
     Dates: start: 20110527
  4. COUMADIN [Concomitant]

REACTIONS (2)
  - PREGNANCY [None]
  - ABORTION INDUCED [None]
